FAERS Safety Report 6558204-8 (Version None)
Quarter: 2010Q1

REPORT INFORMATION
  Report Type: 
  Country: None (occurrence: None)
  Receive Date: 20100127
  Receipt Date: 20100127
  Transmission Date: 20100710
  Serious: Yes (Hospitalization)
  Sender: FDA-Public Use
  Company Number: None

PATIENT
  Age: 72 Year
  Sex: Female
  Weight: 84.1 kg

DRUGS (6)
  1. ASPIRIN [Suspect]
     Indication: ANTICOAGULANT THERAPY
     Dosage: 81 MG DAILY PO, CHRONIC
  2. COUMADIN [Suspect]
     Indication: BLOOD PHOSPHORUS
     Dosage: ?? PO, RECENT
     Route: 048
  3. M.V.I. [Concomitant]
  4. AMLODIPINE [Concomitant]
  5. SENOKOT [Concomitant]
  6. LEVA4 [Concomitant]

REACTIONS (5)
  - ANAEMIA [None]
  - COLITIS [None]
  - INTERNATIONAL NORMALISED RATIO INCREASED [None]
  - POLYP [None]
  - PYREXIA [None]
